FAERS Safety Report 6397343-1 (Version None)
Quarter: 2009Q4

REPORT INFORMATION
  Report Type: 
  Country: None (occurrence: None)
  Receive Date: 20091012
  Receipt Date: 20091005
  Transmission Date: 20100525
  Serious: Yes (Other)
  Sender: FDA-Public Use
  Company Number: DE-JNJFOC-20091001305

PATIENT
  Sex: Male

DRUGS (1)
  1. CONCERTA [Suspect]
     Indication: INTENTIONAL DRUG MISUSE
     Dosage: 2-4 TABLETS OF 54 MG
     Route: 048

REACTIONS (5)
  - HALLUCINATION [None]
  - INTENTIONAL DRUG MISUSE [None]
  - INTENTIONAL OVERDOSE [None]
  - PARAESTHESIA [None]
  - SLEEP DISORDER [None]
